FAERS Safety Report 9327985 (Version 1)
Quarter: 2013Q2

REPORT INFORMATION
  Report Type: Spontaneous
  Country: US (occurrence: US)
  Receive Date: 20130604
  Receipt Date: 20130604
  Transmission Date: 20140414
  Serious: No
  Sender: FDA-Public Use
  Company Number: US-SANOFI-AVENTIS-2012SA029989

PATIENT
  Age: 71 Year
  Sex: Male

DRUGS (2)
  1. SOLOSTAR [Suspect]
     Indication: TYPE 2 DIABETES MELLITUS
     Dosage: 2-3 YEARS AGO
  2. LANTUS [Suspect]
     Indication: TYPE 2 DIABETES MELLITUS
     Dosage: 2-3 YEARS AGO DOSE:35 UNIT(S)
     Route: 058

REACTIONS (2)
  - Feeling abnormal [Recovered/Resolved]
  - Product quality issue [Unknown]
